FAERS Safety Report 10550147 (Version 1)
Quarter: 2014Q4

REPORT INFORMATION
  Report Type: Spontaneous
  Country: US (occurrence: US)
  Receive Date: 20141028
  Receipt Date: 20141028
  Transmission Date: 20150529
  Serious: Yes (Hospitalization)
  Sender: FDA-Public Use
  Company Number: US-B.I. PHARMACEUTICALS,INC./RIDGEFIELD-2014-BI-51187BP

PATIENT
  Age: 30 Year
  Sex: Female
  Weight: 117.93 kg

DRUGS (1)
  1. DULCOLAX [Suspect]
     Active Substance: BISACODYL OR DOCUSATE SODIUM
     Indication: BOWEL PREPARATION
     Dosage: 15 MG
     Route: 048
     Dates: start: 20140921, end: 20140921

REACTIONS (5)
  - Abdominal pain upper [Not Recovered/Not Resolved]
  - Myocardial infarction [Recovered/Resolved]
  - Vomiting [Recovered/Resolved]
  - Haemoptysis [Recovered/Resolved]
  - Off label use [Unknown]

NARRATIVE: CASE EVENT DATE: 201409
